FAERS Safety Report 9225104 (Version 7)
Quarter: 2015Q1

REPORT INFORMATION
  Report Type: Report from Study
  Country: GR (occurrence: GR)
  Receive Date: 20130411
  Receipt Date: 20150323
  Transmission Date: 20150721
  Serious: Yes (Life-Threatening, Hospitalization)
  Sender: FDA-Public Use
  Company Number: GR-JNJFOC-20130403549

PATIENT
  Age: 20 Year
  Sex: Male

DRUGS (3)
  1. REMICADE [Suspect]
     Active Substance: INFLIXIMAB
     Indication: CROHN^S DISEASE
     Dosage: ^DOSE IN SERIES: 6^
     Route: 042
     Dates: start: 20120629, end: 20130221
  2. AZATHIOPRINE. [Suspect]
     Active Substance: AZATHIOPRINE
     Indication: CROHN^S DISEASE
     Route: 048
     Dates: start: 201008, end: 20120809
  3. METHYLPREDNISOLONE. [Suspect]
     Active Substance: METHYLPREDNISOLONE
     Indication: CROHN^S DISEASE
     Route: 065
     Dates: start: 201008, end: 201010

REACTIONS (1)
  - Hodgkin^s disease nodular sclerosis stage II [Recovering/Resolving]

NARRATIVE: CASE EVENT DATE: 20130302
